FAERS Safety Report 13898664 (Version 1)
Quarter: 2017Q3

REPORT INFORMATION
  Report Type: Spontaneous
  Country: US (occurrence: US)
  Receive Date: 20170824
  Receipt Date: 20170824
  Transmission Date: 20171127
  Serious: No
  Sender: FDA-Public Use
  Company Number: US-GLAXOSMITHKLINE-US2017128525

PATIENT
  Sex: Female

DRUGS (2)
  1. ABREVA [Suspect]
     Active Substance: DOCOSANOL
     Indication: ORAL HERPES
     Dosage: UNK, FIVE TIMES A DAY
     Dates: start: 201708, end: 20170814
  2. ABREVA [Suspect]
     Active Substance: DOCOSANOL
     Dosage: UNK, SEVERAL TIMES A DAY
     Dates: start: 20170814

REACTIONS (2)
  - Inappropriate schedule of drug administration [Unknown]
  - Wrong technique in product usage process [Unknown]
